FAERS Safety Report 24968787 (Version 1)
Quarter: 2025Q1

REPORT INFORMATION
  Report Type: Report from Study
  Country: US (occurrence: US)
  Receive Date: 20250214
  Receipt Date: 20250214
  Transmission Date: 20250409
  Serious: No
  Sender: AMNEAL
  Company Number: US-AMNEAL PHARMACEUTICALS-2024-AMRX-02411

PATIENT
  Sex: Male
  Weight: 91.156 kg

DRUGS (5)
  1. CARBIDOPA\LEVODOPA [Suspect]
     Active Substance: CARBIDOPA\LEVODOPA
     Indication: Product used for unknown indication
     Dosage: (61.25/245 MG) 3 CAPSULES, 3 /DAY
     Route: 048
  2. RASAGILINE [Concomitant]
     Active Substance: RASAGILINE
     Indication: Product used for unknown indication
     Dosage: (1 MG) 1 TABLETS, 1 /DAY
     Route: 048
  3. METOPROLOL SUCCINATE [Concomitant]
     Active Substance: METOPROLOL SUCCINATE
     Indication: Product used for unknown indication
     Route: 065
  4. CITALOPRAM [Concomitant]
     Active Substance: CITALOPRAM
     Indication: Product used for unknown indication
     Dosage: (20 MG) 1 TABLETS, EVENING
     Route: 065
  5. AMLODIPINE [Concomitant]
     Active Substance: AMLODIPINE BESYLATE
     Indication: Product used for unknown indication
     Dosage: (5 MG) 1 TABLETS, DAILY
     Route: 065

REACTIONS (4)
  - Resting tremor [Recovering/Resolving]
  - Reduced facial expression [Recovering/Resolving]
  - Cogwheel rigidity [Recovering/Resolving]
  - Movement disorder [Recovering/Resolving]
